FAERS Safety Report 5769968-5 (Version None)
Quarter: 2008Q2

REPORT INFORMATION
  Report Type: 
  Country: None (occurrence: None)
  Receive Date: 20080613
  Receipt Date: 20080414
  Transmission Date: 20081010
  Serious: No
  Sender: FDA-Public Use
  Company Number: US-ABBOTT-08P-163-0447310-00

PATIENT
  Sex: Male
  Weight: 86.26 kg

DRUGS (5)
  1. HUMIRA [Suspect]
     Indication: COLITIS ULCERATIVE
     Route: 058
     Dates: start: 20070501, end: 20070501
  2. HUMIRA [Suspect]
     Route: 058
  3. FENTANYL [Concomitant]
     Indication: BACK PAIN
     Route: 062
     Dates: start: 20060101
  4. ACETAMINOPHEN [Concomitant]
     Indication: BACK PAIN
     Route: 048
  5. STOMACH PILL [Concomitant]
     Indication: IMPAIRED GASTRIC EMPTYING
     Dosage: TID WITH MEALS
     Dates: start: 20060101

REACTIONS (1)
  - INFLUENZA LIKE ILLNESS [None]
